FAERS Safety Report 9515830 (Version 1)
Quarter: 2013Q1

REPORT INFORMATION
  Report Type: Spontaneous
  Country: US (occurrence: None)
  Receive Date: 20130305
  Receipt Date: 20130305
  Transmission Date: 20140127
  Serious: Yes (Other)
  Sender: FDA-Public Use
  Company Number: 163-21880-12012152

PATIENT
  Age: 67 Year
  Sex: Female

DRUGS (1)
  1. REVLIMID (LENALIDOMIDE) (CAPSULES) [Suspect]
     Route: 048
     Dates: start: 20120114, end: 20120118

REACTIONS (2)
  - Neutropenia [None]
  - Full blood count decreased [None]
